FAERS Safety Report 5747710-1 (Version None)
Quarter: 2008Q2

REPORT INFORMATION
  Report Type: 
  Country: None (occurrence: None)
  Receive Date: 20080523
  Receipt Date: 20080512
  Transmission Date: 20081010
  Serious: Yes (Congenital Anomaly)
  Sender: FDA-Public Use
  Company Number: BR-ROCHE-564278

PATIENT
  Sex: Female
  Weight: 2.6 kg

DRUGS (1)
  1. VALIUM [Suspect]
     Indication: NERVOUSNESS
     Dates: start: 19790401, end: 19791201

REACTIONS (3)
  - CONGENITAL ANOMALY [None]
  - CYANOSIS [None]
  - PREMATURE BABY [None]
